FAERS Safety Report 9304480 (Version 7)
Quarter: 2014Q4

REPORT INFORMATION
  Report Type: Spontaneous
  Country: US (occurrence: US)
  Receive Date: 20130523
  Receipt Date: 20141007
  Transmission Date: 20150529
  Serious: Yes (Hospitalization, Other)
  Sender: FDA-Public Use
  Company Number: US-009507513-1305USA012264

PATIENT
  Sex: Male
  Weight: 103.4 kg

DRUGS (4)
  1. PROSCAR [Suspect]
     Active Substance: FINASTERIDE
     Indication: BENIGN PROSTATIC HYPERPLASIA
     Dosage: 5 MG, QD
     Route: 048
     Dates: start: 1997, end: 2005
  2. FINASTERIDE. [Suspect]
     Active Substance: FINASTERIDE
     Dosage: 5 MG, UNK
     Dates: start: 2006, end: 200809
  3. FINASTERIDE. [Suspect]
     Active Substance: FINASTERIDE
     Dosage: 5 MG, UNK
     Dates: start: 20061201, end: 20090429
  4. PROSCAR [Suspect]
     Active Substance: FINASTERIDE
     Dosage: UNK
     Route: 048
     Dates: start: 20090211, end: 20090817

REACTIONS (29)
  - Hyperlipidaemia [Unknown]
  - Haematocoele [Unknown]
  - Arthralgia [Not Recovered/Not Resolved]
  - Nocturia [Unknown]
  - Prostatic specific antigen increased [Not Recovered/Not Resolved]
  - Ejaculation disorder [Unknown]
  - Hip arthroplasty [Unknown]
  - Hypertonic bladder [Unknown]
  - Penis injury [Unknown]
  - Hypertension [Unknown]
  - Hydrocele [Unknown]
  - Atrial fibrillation [Unknown]
  - Penile size reduced [Unknown]
  - Mental impairment [Unknown]
  - Hormone level abnormal [Unknown]
  - Fatigue [Unknown]
  - Epididymitis [Unknown]
  - Pollakiuria [Unknown]
  - Erectile dysfunction [Unknown]
  - Prostatitis [Not Recovered/Not Resolved]
  - Knee operation [Unknown]
  - Brain injury [Unknown]
  - Penile haemorrhage [Recovered/Resolved]
  - Micturition urgency [Unknown]
  - Reticulocyte count decreased [Unknown]
  - Sexual dysfunction [Not Recovered/Not Resolved]
  - Drug ineffective [Unknown]
  - Epicondylitis [Not Recovered/Not Resolved]
  - Loss of libido [Unknown]

NARRATIVE: CASE EVENT DATE: 1997
